FAERS Safety Report 5938471-1 (Version None)
Quarter: 2008Q4

REPORT INFORMATION
  Report Type: 
  Country: None (occurrence: None)
  Receive Date: 20081103
  Receipt Date: 20081023
  Transmission Date: 20090506
  Serious: Yes (Hospitalization)
  Sender: FDA-Public Use
  Company Number: US-AMGEN-QUU315171

PATIENT
  Age: 68 Year
  Sex: Female

DRUGS (3)
  1. NEULASTA [Suspect]
     Indication: CHEMOTHERAPY
     Route: 065
     Dates: start: 20081014, end: 20081014
  2. ADRIAMYCIN PFS [Concomitant]
     Dates: start: 20081013
  3. CYTOXAN [Concomitant]
     Dates: start: 20081013

REACTIONS (2)
  - PYREXIA [None]
  - THERAPEUTIC RESPONSE DECREASED [None]
